FAERS Safety Report 4953783-6 (Version None)
Quarter: 2006Q1

REPORT INFORMATION
  Report Type: 
  Country: None (occurrence: None)
  Receive Date: 20060327
  Receipt Date: 20060228
  Transmission Date: 20060701
  Serious: Yes (Hospitalization)
  Sender: FDA-Public Use
  Company Number: US-AMGEN-US170628

PATIENT
  Sex: Male
  Weight: 91.5 kg

DRUGS (8)
  1. ETANERCEPT [Suspect]
     Indication: MYOSITIS
     Route: 058
     Dates: start: 20050803, end: 20060222
  2. ETANERCEPT [Suspect]
     Dates: start: 20060307
  3. DIOVAN [Concomitant]
     Route: 048
     Dates: start: 20000101
  4. ZETIA [Concomitant]
     Route: 048
     Dates: start: 20040101
  5. LOPID [Concomitant]
     Route: 048
     Dates: start: 19950101
  6. ASPIRIN [Concomitant]
     Route: 048
     Dates: start: 19950101
  7. NIACIN [Concomitant]
     Route: 048
     Dates: start: 20050101
  8. DIGOXIN [Concomitant]
     Route: 048
     Dates: start: 19950801

REACTIONS (3)
  - AORTIC ARTERIOSCLEROSIS [None]
  - ARTERIOSCLEROSIS CORONARY ARTERY [None]
  - CARDIAC FAILURE [None]
